FAERS Safety Report 22387143 (Version 1)
Quarter: 2023Q2

REPORT INFORMATION
  Report Type: Spontaneous
  Country: US (occurrence: US)
  Receive Date: 20230531
  Receipt Date: 20230531
  Transmission Date: 20230721
  Serious: No
  Sender: FDA-Public Use
  Company Number: US-PADAGIS-2023PAD00773

PATIENT

DRUGS (1)
  1. TRETINOIN [Suspect]
     Active Substance: TRETINOIN
     Indication: Skin wrinkling
     Dosage: UNK
     Route: 065

REACTIONS (3)
  - Skin burning sensation [Recovered/Resolved]
  - Product use in unapproved indication [Unknown]
  - Product quality issue [Unknown]

NARRATIVE: CASE EVENT DATE: 20230524
